FAERS Safety Report 7956980-0 (Version None)
Quarter: 2011Q4

REPORT INFORMATION
  Report Type: 
  Country: None (occurrence: None)
  Receive Date: 20111205
  Receipt Date: 20111205
  Transmission Date: 20120403
  Serious: No
  Sender: FDA-Public Use
  Company Number: None

PATIENT
  Age: 68 Year
  Sex: Male
  Weight: 92.532 kg

DRUGS (1)
  1. HEPARIN SODIUM [Suspect]
     Indication: THERAPEUTIC PROCEDURE
     Dosage: 11,000 UNITS
     Route: 042
     Dates: start: 20111108, end: 20111108

REACTIONS (1)
  - COAGULATION TIME ABNORMAL [None]
